FAERS Safety Report 10288294 (Version 4)
Quarter: 2015Q2

REPORT INFORMATION
  Report Type: Spontaneous
  Country: IT (occurrence: IT)
  Receive Date: 20140709
  Receipt Date: 20150626
  Transmission Date: 20150821
  Serious: Yes (Hospitalization)
  Sender: FDA-Public Use
  Company Number: IT-UCBSA-2014004371

PATIENT
  Age: 33 Year
  Sex: Male

DRUGS (1)
  1. KEPPRA [Suspect]
     Active Substance: LEVETIRACETAM
     Indication: EPILEPSY CONGENITAL
     Dosage: 1000 MG, ONCE DAILY (QD)
     Route: 048
     Dates: start: 20100601, end: 20140624

REACTIONS (6)
  - Nausea [Unknown]
  - Pain [Unknown]
  - Visual impairment [Unknown]
  - Conversion disorder [Unknown]
  - Headache [Unknown]
  - Paraesthesia [Unknown]

NARRATIVE: CASE EVENT DATE: 2014
